FAERS Safety Report 6434911-2 (Version None)
Quarter: 2009Q4

REPORT INFORMATION
  Report Type: 
  Country: None (occurrence: None)
  Receive Date: 20091110
  Receipt Date: 20091106
  Transmission Date: 20100525
  Serious: Yes (Death)
  Sender: FDA-Public Use
  Company Number: FI-BRISTOL-MYERS SQUIBB COMPANY-14845499

PATIENT
  Age: 48 Year
  Sex: Male

DRUGS (2)
  1. ORENCIA [Suspect]
  2. ALCOHOL [Concomitant]

REACTIONS (1)
  - DEATH [None]
